FAERS Safety Report 10167780 (Version 2)
Quarter: 2014Q2

REPORT INFORMATION
  Report Type: Spontaneous
  Country: US (occurrence: US)
  Receive Date: 20140512
  Receipt Date: 20140617
  Transmission Date: 20141212
  Serious: Yes (Other)
  Sender: FDA-Public Use
  Company Number: US-BRISTOL-MYERS SQUIBB COMPANY-20720629

PATIENT
  Age: 73 Year
  Sex: Female

DRUGS (1)
  1. BYDUREON [Suspect]

REACTIONS (2)
  - Pharyngeal mass [Unknown]
  - Blood glucose increased [Unknown]
